FAERS Safety Report 16578248 (Version 3)
Quarter: 2019Q3

REPORT INFORMATION
  Report Type: Spontaneous
  Country: TW (occurrence: TW)
  Receive Date: 20190716
  Receipt Date: 20190830
  Transmission Date: 20191004
  Serious: Yes (Life-Threatening, Hospitalization, Other)
  Sender: FDA-Public Use
  Company Number: TW-PFIZER INC-2019303331

PATIENT
  Age: 50 Year
  Sex: Male

DRUGS (4)
  1. METHYLPREDNISOLONE. [Suspect]
     Active Substance: METHYLPREDNISOLONE
     Indication: HYPERSENSITIVITY PNEUMONITIS
     Dosage: 40 MG, 2X/DAY (6/19-23)
     Route: 042
     Dates: start: 20180619, end: 20180623
  2. DEXAMETHASONE. [Suspect]
     Active Substance: DEXAMETHASONE
     Indication: HYPERSENSITIVITY PNEUMONITIS
     Dosage: 4 MG, 3X/DAY (6/2-6/19)
     Route: 048
     Dates: start: 20180602, end: 20180619
  3. DEXAMETHASONE. [Suspect]
     Active Substance: DEXAMETHASONE
     Dosage: 4 MG, 3X/DAY (6/24-7/2)
     Route: 048
     Dates: start: 20180624, end: 20180702
  4. HYDROCORTISONE. [Suspect]
     Active Substance: HYDROCORTISONE
     Indication: HYPERSENSITIVITY PNEUMONITIS
     Dosage: 100 MG, 3X/DAY (5/28-6/1)
     Route: 042
     Dates: start: 20180528, end: 20180601

REACTIONS (2)
  - Pneumoretroperitoneum [Unknown]
  - Pneumatosis intestinalis [Unknown]
